FAERS Safety Report 24702733 (Version 1)
Quarter: 2024Q4

REPORT INFORMATION
  Report Type: Spontaneous
  Country: US (occurrence: US)
  Receive Date: 20241205
  Receipt Date: 20241205
  Transmission Date: 20250115
  Serious: No
  Sender: USAntibiotics
  Company Number: US-USAntibiotics-000367

PATIENT
  Age: 67 Year
  Sex: Female

DRUGS (6)
  1. AUGMENTIN [Suspect]
     Active Substance: AMOXICILLIN\CLAVULANATE POTASSIUM
     Indication: Mycobacterium avium complex infection
     Dates: start: 202408
  2. AZITHROMYCIN [Concomitant]
     Active Substance: AZITHROMYCIN
     Indication: Cough
     Dates: start: 20240213
  3. CEFDINIR [Concomitant]
     Active Substance: CEFDINIR
     Indication: Cough
     Dates: start: 202405
  4. BACTRIM [Concomitant]
     Active Substance: SULFAMETHOXAZOLE\TRIMETHOPRIM
     Indication: Cough
     Dates: start: 202406
  5. LEVAQUIN [Concomitant]
     Active Substance: LEVOFLOXACIN
     Indication: Cough
     Dates: start: 202407
  6. AUGMENTIN [Suspect]
     Active Substance: AMOXICILLIN\CLAVULANATE POTASSIUM
     Indication: Mycobacterium avium complex infection
     Dates: start: 202409

REACTIONS (5)
  - Off label use [Unknown]
  - Drug ineffective [Unknown]
  - Dyspnoea [Unknown]
  - Fatigue [Unknown]
  - Decreased appetite [Unknown]

NARRATIVE: CASE EVENT DATE: 20240101
